FAERS Safety Report 8336232-X (Version None)
Quarter: 2012Q2

REPORT INFORMATION
  Report Type: 
  Country: None (occurrence: None)
  Receive Date: 20120504
  Receipt Date: 20120426
  Transmission Date: 20120825
  Serious: Yes (Other)
  Sender: FDA-Public Use
  Company Number: US-UCBSA-056276

PATIENT
  Age: 26 Year
  Sex: Female

DRUGS (3)
  1. VIMPAT [Suspect]
     Dates: start: 20101101
  2. TRILEPTAL [Concomitant]
  3. LEVETIRACETAM [Concomitant]

REACTIONS (1)
  - CONVULSION [None]
